FAERS Safety Report 8525711-8 (Version None)
Quarter: 2012Q3

REPORT INFORMATION
  Report Type: 
  Country: None (occurrence: None)
  Receive Date: 20120720
  Receipt Date: 20120711
  Transmission Date: 20120928
  Serious: Yes (Hospitalization, Other)
  Sender: FDA-Public Use
  Company Number: US-009507513-1103USA00832

PATIENT

DRUGS (5)
  1. FOSAMAX [Suspect]
     Indication: OSTEOPENIA
     Route: 048
     Dates: start: 19980101
  2. FOSAMAX [Suspect]
     Dosage: 70 MG, QW
     Route: 048
     Dates: start: 20020606, end: 20090701
  3. FOSAMAX [Suspect]
     Dosage: 70 MG, QW
     Route: 048
     Dates: start: 20090813, end: 20100323
  4. MK-9278 [Concomitant]
     Indication: OSTEOPENIA
     Dosage: 1 IU, QD
     Dates: start: 20030101
  5. CALCIUM (UNSPECIFIED) (+) VITAMIN D (UNSPECIFIED) [Concomitant]
     Indication: OSTEOPENIA
     Dosage: 600 MG, QD
     Dates: start: 20030101

REACTIONS (18)
  - LIGAMENT SPRAIN [None]
  - HYPERCHOLESTEROLAEMIA [None]
  - FRACTURE [None]
  - OSTEOPOROSIS [None]
  - ROAD TRAFFIC ACCIDENT [None]
  - HYPERLIPIDAEMIA [None]
  - MIGRAINE [None]
  - HAEMANGIOMA [None]
  - FEMUR FRACTURE [None]
  - ARTHRITIS [None]
  - SYNOVIAL CYST [None]
  - FALL [None]
  - CONTUSION [None]
  - FRACTURE NONUNION [None]
  - HAEMATURIA [None]
  - BODY HEIGHT DECREASED [None]
  - RADIUS FRACTURE [None]
  - OSTEOARTHRITIS [None]
